FAERS Safety Report 6683033-4 (Version None)
Quarter: 2010Q2

REPORT INFORMATION
  Report Type: 
  Country: None (occurrence: None)
  Receive Date: 20100415
  Receipt Date: 20100407
  Transmission Date: 20101027
  Serious: Yes (Other)
  Sender: FDA-Public Use
  Company Number: TN-ABBOTT-10P-160-0637561-00

PATIENT
  Age: 8 Year
  Sex: Female

DRUGS (1)
  1. SEVOFLURANE [Suspect]
     Indication: SCLEROTHERAPY

REACTIONS (1)
  - GRAND MAL CONVULSION [None]
